FAERS Safety Report 4286794-7 (Version None)
Quarter: 2004Q1

REPORT INFORMATION
  Report Type: 
  Country: None (occurrence: None)
  Receive Date: 20040206
  Receipt Date: 20040204
  Transmission Date: 20041129
  Serious: Yes (Disabling)
  Sender: FDA-Public Use
  Company Number: SE-ROCHE-358043

PATIENT
  Age: 26 Year
  Sex: Male

DRUGS (2)
  1. ISOTRETINOIN [Suspect]
     Indication: ACNE
     Dosage: PATIENT TOOK 30 MG IN THE MORNING AND 20 MG IN THE EVENING.
     Route: 048
     Dates: start: 20030915
  2. ANABOLIC STEROIDS [Suspect]
     Indication: DRUG USE FOR UNKNOWN INDICATION
     Route: 065
     Dates: end: 19980615

REACTIONS (2)
  - SINUS BRADYCARDIA [None]
  - SYNCOPE [None]
